FAERS Safety Report 6688424-3 (Version None)
Quarter: 2010Q2

REPORT INFORMATION
  Report Type: 
  Country: None (occurrence: None)
  Receive Date: 20100420
  Receipt Date: 20100412
  Transmission Date: 20101027
  Serious: Yes (Hospitalization)
  Sender: FDA-Public Use
  Company Number: FR-ASTRAZENECA-2010SE16883

PATIENT
  Age: 27837 Day
  Sex: Male

DRUGS (7)
  1. NEXIUM [Suspect]
     Dosage: LONG LASTING.
     Route: 048
  2. CYMBALTA [Suspect]
     Route: 065
     Dates: start: 20090201
  3. NOCTAMIDE [Suspect]
     Dosage: LONG LASTING.
     Route: 065
  4. IXPRIM [Suspect]
     Dosage: LONG LASTING.
     Route: 065
  5. HALDOL [Concomitant]
     Route: 065
     Dates: start: 20090228
  6. FLUDEX [Concomitant]
     Dosage: LONG LASTING.
     Route: 065
  7. LIPANTHYL [Concomitant]
     Dosage: LONG LASTING.
     Route: 065

REACTIONS (4)
  - AGGRESSION [None]
  - DELUSION [None]
  - HALLUCINATION, AUDITORY [None]
  - SLEEP PHASE RHYTHM DISTURBANCE [None]
